FAERS Safety Report 6738274-4 (Version None)
Quarter: 2010Q2

REPORT INFORMATION
  Report Type: 
  Country: None (occurrence: None)
  Receive Date: 20100524
  Receipt Date: 20100517
  Transmission Date: 20101027
  Serious: Yes (Other)
  Sender: FDA-Public Use
  Company Number: A0860684A

PATIENT
  Sex: Male
  Weight: 81 kg

DRUGS (4)
  1. AVANDIA [Suspect]
     Dosage: 4MG PER DAY
     Dates: start: 20060101
  2. GALVUS [Concomitant]
     Dosage: 1TAB TWICE PER DAY
     Dates: start: 20091001
  3. METFORMIN [Concomitant]
     Dosage: 1TAB THREE TIMES PER DAY
     Dates: start: 20090501
  4. ATACAND [Concomitant]
     Dosage: 1TAB PER DAY
     Dates: start: 20090501

REACTIONS (2)
  - CEREBROVASCULAR ACCIDENT [None]
  - HEMIPLEGIA [None]
